FAERS Safety Report 22531363 (Version 1)
Quarter: 2023Q2

REPORT INFORMATION
  Report Type: Spontaneous
  Country: US (occurrence: None)
  Receive Date: 20230606
  Receipt Date: 20230606
  Transmission Date: 20230721
  Serious: Yes (Other)
  Sender: FDA-Public Use
  Company Number: None

PATIENT
  Age: 39 Year
  Sex: Female

DRUGS (1)
  1. NUZYRA [Suspect]
     Active Substance: OMADACYCLINE
     Indication: Skin infection
     Dosage: OTHER FREQUENCY : 450MGX2D,150MGX40D;?
     Dates: start: 20230502, end: 20230505

REACTIONS (5)
  - Nausea [None]
  - Vomiting [None]
  - Diarrhoea [None]
  - Headache [None]
  - Peripheral swelling [None]

NARRATIVE: CASE EVENT DATE: 20230505
